FAERS Safety Report 9703746 (Version 2)
Quarter: 2013Q4

REPORT INFORMATION
  Report Type: Report from Study
  Country: US (occurrence: US)
  Receive Date: 20131122
  Receipt Date: 20131122
  Transmission Date: 20140711
  Serious: Yes (Hospitalization, Disabling, Other)
  Sender: FDA-Public Use
  Company Number: PHEH2013US016471

PATIENT
  Age: 52 Year
  Sex: Female

DRUGS (13)
  1. GILENYA [Suspect]
     Indication: MULTIPLE SCLEROSIS
     Dosage: 0.5 MG, QD
     Route: 048
     Dates: start: 20130102, end: 20130124
  2. NEURONTIN [Suspect]
     Indication: NYSTAGMUS
  3. MICROGESTIN [Concomitant]
     Dosage: 1 DF, QD
     Route: 048
  4. VESICARE [Concomitant]
     Indication: HYPERTONIC BLADDER
     Dosage: 10 MG, QD
     Route: 048
  5. FLUTICASONE PROPIONATE [Concomitant]
     Dosage: 2 SPRAYS IN EACH NOSTRIL
     Route: 045
     Dates: start: 20120910
  6. ZYRTEC ALLERGY [Concomitant]
     Dosage: 10 MG, QD
     Route: 048
     Dates: start: 20120904
  7. ZOSTAVAX [Concomitant]
  8. AMANTADINE [Concomitant]
  9. ESTRACE [Concomitant]
  10. ATIVAN [Concomitant]
  11. VIT D3 [Concomitant]
  12. MULTI-VIT [Concomitant]
  13. AMBIEN [Concomitant]
     Indication: ANXIETY
     Dosage: 0.5 MG, TID
     Route: 048

REACTIONS (26)
  - Progressive multifocal leukoencephalopathy [Recovered/Resolved with Sequelae]
  - Cerebellar syndrome [Unknown]
  - Pneumonia [Unknown]
  - Balance disorder [Unknown]
  - Speech disorder [Unknown]
  - Condition aggravated [Unknown]
  - Visual acuity reduced [Unknown]
  - Vision blurred [Unknown]
  - Tremor [Unknown]
  - Coordination abnormal [Unknown]
  - Ataxia [Recovering/Resolving]
  - Asthenia [Unknown]
  - Multiple sclerosis relapse [Unknown]
  - Clumsiness [Unknown]
  - Hypoaesthesia [Unknown]
  - Cognitive disorder [Unknown]
  - Gait disturbance [Unknown]
  - Dysstasia [Unknown]
  - Fall [Unknown]
  - Posture abnormal [Unknown]
  - Diplopia [Recovering/Resolving]
  - Pain in extremity [Unknown]
  - Nystagmus [Unknown]
  - Eye movement disorder [Unknown]
  - Muscular weakness [Unknown]
  - Dysphagia [Unknown]
